FAERS Safety Report 8447161 (Version 5)
Quarter: 2013Q2

REPORT INFORMATION
  Report Type: Report from Study
  Country: FR (occurrence: FR)
  Receive Date: 20120308
  Receipt Date: 20130425
  Transmission Date: 20140414
  Serious: Yes (Death, Life-Threatening)
  Sender: FDA-Public Use
  Company Number: FR-CELGENEUS-056-C5013-12030078

PATIENT
  Age: 73 Year
  Sex: Female
  Weight: 60 kg

DRUGS (22)
  1. CC-5013 [Suspect]
     Indication: PLASMA CELL MYELOMA
     Dosage: 25 MILLIGRAM
     Route: 048
     Dates: start: 20100421
  2. CC-5013 [Suspect]
     Dosage: 15 MILLIGRAM
     Route: 048
     Dates: start: 20120111, end: 20120208
  3. DEXAMETHASONE [Suspect]
     Indication: PLASMA CELL MYELOMA
     Dosage: 40 MILLIGRAM
     Route: 065
     Dates: start: 20100421
  4. DEXAMETHASONE [Suspect]
     Dosage: 20 MILLIGRAM
     Route: 065
     Dates: start: 20120111, end: 20120208
  5. KARDEGIC [Concomitant]
     Indication: THROMBOSIS PROPHYLAXIS
     Dosage: 75 MILLIGRAM
     Route: 048
     Dates: start: 200703
  6. VERAPAMIL [Concomitant]
     Indication: HYPERTENSION
     Dosage: 240 MILLIGRAM
     Route: 048
     Dates: start: 200803
  7. SERETIDE [Concomitant]
     Indication: ASTHMA
     Dosage: 1000 MICROGRAM
     Route: 055
     Dates: start: 200912
  8. SINGULAIR [Concomitant]
     Indication: ASTHMA
     Dosage: 5 MILLIGRAM
     Route: 048
     Dates: start: 200801
  9. NASACORT [Concomitant]
     Indication: ASTHMA
     Dosage: 110 MICROGRAM
     Route: 055
  10. VENTOLINE [Concomitant]
     Indication: ASTHMA
     Dosage: 600 MICROGRAM
     Route: 055
  11. KESTINLYO [Concomitant]
     Indication: ASTHMA
     Dosage: 10 MILLIGRAM
     Route: 048
     Dates: start: 200905
  12. ALDACTAZINE [Concomitant]
     Indication: HYPERCHOLESTEROLAEMIA
     Dosage: 25 MILLIGRAM
     Route: 048
     Dates: start: 201005
  13. VOLTAREN EMULGEL [Concomitant]
     Indication: PROPHYLAXIS
     Route: 061
     Dates: start: 1990
  14. SPECIAFOLDINE [Concomitant]
     Indication: ANAEMIA
     Dosage: 10 MILLIGRAM
     Route: 048
     Dates: start: 20100519
  15. HUMALOG MIX 25 [Concomitant]
     Indication: DIABETES MELLITUS
     Route: 058
     Dates: start: 201101
  16. LYRICA [Concomitant]
     Indication: NEURALGIA
     Dosage: 50 MILLIGRAM
     Route: 048
     Dates: start: 20111011
  17. ELISOR [Concomitant]
     Indication: HYPERCHOLESTEROLAEMIA
     Dosage: 20 MILLIGRAM
     Route: 048
     Dates: start: 2006
  18. IXPRIM [Concomitant]
     Indication: GENERAL PHYSICAL HEALTH DETERIORATION
     Route: 048
     Dates: start: 2009
  19. TOPALGIC [Concomitant]
     Indication: NEURALGIA
     Dosage: 200 MILLIGRAM
     Route: 048
     Dates: start: 20111116
  20. DOLIPRANE [Concomitant]
     Indication: WRIST FRACTURE
     Route: 048
     Dates: start: 201112, end: 201202
  21. PYOSTACINE [Concomitant]
     Indication: PRODUCT USED FOR UNKNOWN INDICATION
     Route: 048
     Dates: start: 20120201, end: 20120202
  22. PRIMALAN [Concomitant]
     Indication: PRURITUS
     Route: 048

REACTIONS (1)
  - Small intestine carcinoma metastatic [Fatal]
